FAERS Safety Report 7099367-8 (Version None)
Quarter: 2010Q4

REPORT INFORMATION
  Report Type: 
  Country: None (occurrence: None)
  Receive Date: 20101112
  Receipt Date: 20090511
  Transmission Date: 20110411
  Serious: No
  Sender: FDA-Public Use
  Company Number: US-KINGPHARMUSA00001-K200900580

PATIENT
  Sex: Male

DRUGS (1)
  1. ALTACE [Suspect]
     Dosage: 5 MG, QD
     Route: 048
     Dates: start: 19990101

REACTIONS (2)
  - ANTINEUTROPHIL CYTOPLASMIC ANTIBODY INCREASED [None]
  - RED BLOOD CELL SEDIMENTATION RATE INCREASED [None]
